FAERS Safety Report 8232734-5 (Version None)
Quarter: 2012Q1

REPORT INFORMATION
  Report Type: 
  Country: None (occurrence: None)
  Receive Date: 20120323
  Receipt Date: 20120316
  Transmission Date: 20120608
  Serious: Yes (Other)
  Sender: FDA-Public Use
  Company Number: JP-ASTRAZENECA-2012SE16722

PATIENT
  Age: 70 Year
  Sex: Male
  Weight: 60 kg

DRUGS (3)
  1. CRESTOR [Suspect]
     Indication: HYPERCHOLESTEROLAEMIA
     Route: 048
     Dates: start: 20120229, end: 20120303
  2. KETOPROFEN [Suspect]
     Indication: LIGAMENT SPRAIN
     Route: 062
     Dates: start: 20120229
  3. LARILUDON [Concomitant]
     Indication: HYPERTENSION
     Route: 048
     Dates: start: 20101023

REACTIONS (2)
  - BLOOD PRESSURE DECREASED [None]
  - MALAISE [None]
